FAERS Safety Report 24226549 (Version 1)
Quarter: 2024Q3

REPORT INFORMATION
  Report Type: Spontaneous
  Country: AT (occurrence: AT)
  Receive Date: 20240820
  Receipt Date: 20240820
  Transmission Date: 20241017
  Serious: Yes (Other)
  Sender: SANDOZ
  Company Number: None

PATIENT
  Age: 54 Year
  Sex: Female

DRUGS (3)
  1. CYTARABINE [Suspect]
     Active Substance: CYTARABINE
     Indication: Systemic mastocytosis
     Dosage: 2 CYCLE OF 2 G/M2, UNK (DAY1-5)
     Route: 065
  2. FLUDARABINE [Suspect]
     Active Substance: FLUDARABINE PHOSPHATE
     Indication: Systemic mastocytosis
     Dosage: 2 CYCLE OF 30 MG/M2, UNK (DAY1-5)
     Route: 065
  3. GRANULOCYTE COLONY-STIMULATING FACTOR NOS [Suspect]
     Active Substance: GRANULOCYTE COLONY-STIMULATING FACTOR NOS
     Indication: Systemic mastocytosis
     Dosage: 2 CYCLES OF 300 MU G, UNK (FROM DAY 6)
     Route: 065

REACTIONS (3)
  - Systemic mastocytosis [Unknown]
  - Recurrent cancer [Unknown]
  - Product use in unapproved indication [Unknown]
